FAERS Safety Report 15771421 (Version 2)
Quarter: 2019Q2

REPORT INFORMATION
  Report Type: Spontaneous
  Country: US (occurrence: US)
  Receive Date: 20181228
  Receipt Date: 20190503
  Transmission Date: 20190711
  Serious: Yes (Other)
  Sender: FDA-Public Use
  Company Number: US-ASTRAZENECA-2018SF47775

PATIENT
  Age: 19160 Day
  Sex: Female
  Weight: 94.3 kg

DRUGS (25)
  1. PRILOSEC [Suspect]
     Active Substance: OMEPRAZOLE MAGNESIUM
     Route: 065
     Dates: start: 20040220, end: 20041104
  2. PRILOSEC OTC [Suspect]
     Active Substance: OMEPRAZOLE MAGNESIUM
     Route: 065
     Dates: start: 20070411
  3. ATORVASTATIN [Concomitant]
     Active Substance: ATORVASTATIN
  4. LORATADINE. [Concomitant]
     Active Substance: LORATADINE
  5. OXYBUTYNIN. [Concomitant]
     Active Substance: OXYBUTYNIN CHLORIDE
  6. ZYRTEC [Concomitant]
     Active Substance: CETIRIZINE HYDROCHLORIDE
  7. FLUOXETINE [Concomitant]
     Active Substance: FLUOXETINE HYDROCHLORIDE
  8. GLIPIZIDE. [Concomitant]
     Active Substance: GLIPIZIDE
  9. LAMOTRIGINE. [Concomitant]
     Active Substance: LAMOTRIGINE
  10. PRILOSEC OTC [Suspect]
     Active Substance: OMEPRAZOLE MAGNESIUM
     Route: 065
     Dates: start: 20040220, end: 20041104
  11. ASPIRIN. [Concomitant]
     Active Substance: ASPIRIN
  12. ALBUTEROL. [Concomitant]
     Active Substance: ALBUTEROL
  13. TOPAMAX [Concomitant]
     Active Substance: TOPIRAMATE
  14. TIZANIDINE. [Concomitant]
     Active Substance: TIZANIDINE
  15. METOPROLOL. [Concomitant]
     Active Substance: METOPROLOL
  16. SIMVASTATIN. [Concomitant]
     Active Substance: SIMVASTATIN
  17. AMLODIPINE [Concomitant]
     Active Substance: AMLODIPINE BESYLATE
  18. BETHANECHOL [Concomitant]
     Active Substance: BETHANECHOL
  19. CLONAZEPAM. [Concomitant]
     Active Substance: CLONAZEPAM
  20. RANITIDINE. [Concomitant]
     Active Substance: RANITIDINE
  21. CHLORTHALIDONE. [Concomitant]
     Active Substance: CHLORTHALIDONE
  22. LIPITOR [Concomitant]
     Active Substance: ATORVASTATIN CALCIUM
  23. CARAFATE [Concomitant]
     Active Substance: SUCRALFATE
  24. COLACE [Concomitant]
     Active Substance: DOCUSATE SODIUM
  25. DOXAZOSIN [Concomitant]
     Active Substance: DOXAZOSIN\DOXAZOSIN MESYLATE

REACTIONS (4)
  - Nephrogenic anaemia [Unknown]
  - Chronic kidney disease [Not Recovered/Not Resolved]
  - End stage renal disease [Unknown]
  - Renal failure [Unknown]

NARRATIVE: CASE EVENT DATE: 20170913
